FAERS Safety Report 4762146-8 (Version None)
Quarter: 2005Q3

REPORT INFORMATION
  Report Type: 
  Country: None (occurrence: None)
  Receive Date: 20050906
  Receipt Date: 20050906
  Transmission Date: 20060218
  Serious: Yes (Other)
  Sender: FDA-Public Use
  Company Number: None

PATIENT
  Sex: Female
  Weight: 80 kg

DRUGS (2)
  1. ACETADOTE [Suspect]
     Indication: DRUG TOXICITY
     Dosage: 150 MG/KG LOADING DOSE IV
     Route: 042
     Dates: start: 20050804, end: 20050804
  2. ORAL ACTIVATED CHARCOAL [Concomitant]

REACTIONS (4)
  - ANAPHYLACTOID REACTION [None]
  - BRONCHOSPASM [None]
  - HYPERTENSION [None]
  - TACHYCARDIA [None]
